FAERS Safety Report 8465149-5 (Version None)
Quarter: 2012Q2

REPORT INFORMATION
  Report Type: 
  Country: None (occurrence: None)
  Receive Date: 20120626
  Receipt Date: 20120620
  Transmission Date: 20120825
  Serious: Yes (Hospitalization)
  Sender: FDA-Public Use
  Company Number: JP-PFIZER INC-2012149328

PATIENT
  Sex: Male

DRUGS (1)
  1. HALCION [Suspect]
     Dosage: 0.125 MG OR 0.25 MG C.A ONCE EVERY 3 DAYS
     Route: 048

REACTIONS (1)
  - INTERVERTEBRAL DISC PROTRUSION [None]
